FAERS Safety Report 14690731 (Version 1)
Quarter: 2018Q1

REPORT INFORMATION
  Report Type: Spontaneous
  Country: CA (occurrence: CA)
  Receive Date: 20180328
  Receipt Date: 20180328
  Transmission Date: 20180509
  Serious: Yes (Life-Threatening, Hospitalization, Other)
  Sender: FDA-Public Use
  Company Number: CA-BAYER-2018-054600

PATIENT
  Age: 77 Year
  Sex: Male
  Weight: 68.03 kg

DRUGS (1)
  1. GADOVIST [Suspect]
     Active Substance: GADOBUTROL
     Indication: COMPUTERISED TOMOGRAM
     Dosage: 10 ML, ONCE
     Route: 042

REACTIONS (8)
  - Cough [None]
  - Blood creatinine abnormal [None]
  - Dyspnoea [None]
  - Endotracheal intubation [None]
  - Increased bronchial secretion [None]
  - Dysarthria [None]
  - Oral discomfort [None]
  - Depressed level of consciousness [None]
